FAERS Safety Report 14132063 (Version 2)
Quarter: 2019Q2

REPORT INFORMATION
  Report Type: Spontaneous
  Country: CZ (occurrence: CZ)
  Receive Date: 20171026
  Receipt Date: 20190530
  Transmission Date: 20190711
  Serious: Yes (Death, Hospitalization, Other)
  Sender: FDA-Public Use
  Company Number: CZ-TEVA-817455ROM

PATIENT
  Sex: Male

DRUGS (7)
  1. AMOXICILLIN W/CLAVULANIC ACID [Suspect]
     Active Substance: AMOXICILLIN\CLAVULANIC ACID
     Indication: PNEUMONIA
     Route: 065
  2. NADROPARIN [Concomitant]
     Active Substance: NADROPARIN
  3. METHYLPREDNISOLONE. [Suspect]
     Active Substance: METHYLPREDNISOLONE
     Dosage: 125MG-80MG-80MG
     Route: 065
  4. AMLODIPINE [Concomitant]
     Active Substance: AMLODIPINE BESYLATE
     Route: 048
  5. OMEPRAZOLE. [Concomitant]
     Active Substance: OMEPRAZOLE
     Route: 048
  6. METHYLPREDNISOLONE. [Suspect]
     Active Substance: METHYLPREDNISOLONE
     Indication: TOXIC EPIDERMAL NECROLYSIS
     Dosage: 125MG-0-80MG
     Route: 065
  7. OMEPRAZOLE. [Concomitant]
     Active Substance: OMEPRAZOLE
     Route: 048

REACTIONS (3)
  - Toxic epidermal necrolysis [Not Recovered/Not Resolved]
  - Sepsis [Fatal]
  - Impaired healing [Not Recovered/Not Resolved]
